FAERS Safety Report 25019988 (Version 2)
Quarter: 2025Q1

REPORT INFORMATION
  Report Type: Spontaneous
  Country: US (occurrence: US)
  Receive Date: 20250227
  Receipt Date: 20250318
  Transmission Date: 20250409
  Serious: Yes (Other)
  Sender: ABBVIE
  Company Number: US-ABBVIE-6147729

PATIENT
  Age: 74 Year
  Sex: Female

DRUGS (1)
  1. REFRESH RELIEVA PF [Suspect]
     Active Substance: CARBOXYMETHYLCELLULOSE SODIUM\GLYCERIN
     Indication: Product used for unknown indication
     Route: 047

REACTIONS (5)
  - Eye operation [Unknown]
  - Contraindicated product administered [Unknown]
  - Product container issue [Not Recovered/Not Resolved]
  - Headache [Unknown]
  - Infection [Unknown]

NARRATIVE: CASE EVENT DATE: 20250101
